FAERS Safety Report 4580113-4 (Version None)
Quarter: 2005Q1

REPORT INFORMATION
  Report Type: 
  Country: None (occurrence: None)
  Receive Date: 20050210
  Receipt Date: 20050125
  Transmission Date: 20050727
  Serious: Yes (Hospitalization)
  Sender: FDA-Public Use
  Company Number: PHBS2005TW01322

PATIENT
  Sex: Male

DRUGS (1)
  1. VISUDYNE [Suspect]

REACTIONS (1)
  - EYE HAEMORRHAGE [None]
